FAERS Safety Report 9365886 (Version 1)
Quarter: 2013Q2

REPORT INFORMATION
  Report Type: Spontaneous
  Country: FR (occurrence: FR)
  Receive Date: 20130625
  Receipt Date: 20130625
  Transmission Date: 20140414
  Serious: Yes (Hospitalization)
  Sender: FDA-Public Use
  Company Number: FR-SANOFI-AVENTIS-2013SA061702

PATIENT
  Age: 75 Year
  Sex: Female

DRUGS (13)
  1. LOVENOX [Suspect]
     Indication: THROMBOSIS PROPHYLAXIS
     Route: 058
     Dates: start: 20121218, end: 20130128
  2. SKENAN [Suspect]
     Indication: PRODUCT USED FOR UNKNOWN INDICATION
     Route: 048
     Dates: start: 20121221, end: 20130129
  3. IMOVANE [Concomitant]
     Route: 048
     Dates: start: 20130201
  4. INEXIUM [Concomitant]
     Route: 048
     Dates: start: 20121219
  5. INEXIUM [Concomitant]
     Route: 048
     Dates: end: 20130212
  6. NOROXINE [Concomitant]
     Route: 048
     Dates: start: 20130207, end: 20130214
  7. PRIMPERAN [Concomitant]
     Route: 042
     Dates: start: 20130128
  8. DAFALGAN [Concomitant]
     Dates: start: 20130131
  9. LERCAN [Concomitant]
     Route: 048
  10. FOZITEC [Concomitant]
     Route: 048
  11. LEVOTHYROX [Concomitant]
     Route: 048
  12. NOVORAPID [Concomitant]
     Route: 058
  13. LANTUS [Concomitant]
     Route: 058

REACTIONS (5)
  - Hepatocellular injury [Recovered/Resolved]
  - Aspartate aminotransferase increased [Recovered/Resolved]
  - Alanine aminotransferase increased [Recovered/Resolved]
  - Cholestasis [Unknown]
  - Haematemesis [Recovered/Resolved]
